FAERS Safety Report 5021051-2 (Version None)
Quarter: 2006Q2

REPORT INFORMATION
  Report Type: 
  Country: None (occurrence: None)
  Receive Date: 20060414
  Receipt Date: 20060201
  Transmission Date: 20061013
  Serious: Yes (Other)
  Sender: FDA-Public Use
  Company Number: US-JNJFOC-20060201395

PATIENT
  Age: 36 Year
  Sex: Male
  Weight: 158.759 kg

DRUGS (1)
  1. ULTRAM [Suspect]
     Indication: PROCEDURAL PAIN
     Dosage: ORAL
     Route: 048
     Dates: start: 19980101, end: 20060101

REACTIONS (3)
  - DRUG DEPENDENCE [None]
  - DRUG WITHDRAWAL SYNDROME [None]
  - WEIGHT DECREASED [None]
